FAERS Safety Report 11094910 (Version 1)
Quarter: 2015Q2

REPORT INFORMATION
  Report Type: Spontaneous
  Country: DE (occurrence: DE)
  Receive Date: 20150506
  Receipt Date: 20150506
  Transmission Date: 20150821
  Serious: Yes (Other)
  Sender: FDA-Public Use
  Company Number: DE-PFIZER INC-2015150314

PATIENT
  Sex: Male
  Weight: 3.9 kg

DRUGS (4)
  1. DOPEGYT [Concomitant]
     Active Substance: METHYLDOPA
     Indication: HYPERTENSION
     Dosage: 250 MG, 3X/DAY; 6. - 39.2. GESTATIONAL WEEK
     Route: 064
  2. FOLIO [Concomitant]
     Active Substance: FOLIC ACID
     Indication: PROPHYLAXIS OF NEURAL TUBE DEFECT
     Dosage: 0.4 MG, DAILY; 6.5. - 14.5. GESTATIONAL WEEK
     Route: 064
  3. VENLAFAXINE HCL [Suspect]
     Active Substance: VENLAFAXINE HYDROCHLORIDE
     Dosage: 75 MG, DAILY STARTING BEGINNING OF 2ND TRIMESTER - WEEK 14
     Route: 064
  4. VENLAFAXINE HCL [Suspect]
     Active Substance: VENLAFAXINE HYDROCHLORIDE
     Indication: DEPRESSION
     Dosage: 150 MG, DAILY, 0-39.2 GW
     Route: 064
     Dates: start: 20140403, end: 20150403

REACTIONS (2)
  - Cerebral haemorrhage neonatal [Recovered/Resolved with Sequelae]
  - Maternal exposure during pregnancy [Unknown]
